FAERS Safety Report 12482748 (Version 3)
Quarter: 2016Q3

REPORT INFORMATION
  Report Type: Spontaneous
  Country: IL (occurrence: IL)
  Receive Date: 20160620
  Receipt Date: 20160915
  Transmission Date: 20161109
  Serious: Yes (Other)
  Sender: FDA-Public Use
  Company Number: IL-PFIZER INC-2016246562

PATIENT
  Age: 40 Year
  Sex: Male

DRUGS (1)
  1. ELELYSO [Suspect]
     Active Substance: TALIGLUCERASE ALFA
     Indication: GAUCHER^S DISEASE
     Dosage: 1400 UNK, ONCE EVERY 2 WEEKS
     Route: 042
     Dates: start: 2001

REACTIONS (5)
  - Inflammation [Unknown]
  - Pain [Recovering/Resolving]
  - Pelvic pain [Recovering/Resolving]
  - Back pain [Recovering/Resolving]
  - Condition aggravated [Unknown]

NARRATIVE: CASE EVENT DATE: 2009
